FAERS Safety Report 11788965 (Version 1)
Quarter: 2015Q4

REPORT INFORMATION
  Report Type: Spontaneous
  Country: PL (occurrence: PL)
  Receive Date: 20151201
  Receipt Date: 20151201
  Transmission Date: 20160305
  Serious: Yes (Other)
  Sender: FDA-Public Use
  Company Number: PHHY2015PL154464

PATIENT
  Age: 20 Month
  Sex: Male

DRUGS (3)
  1. ETOPOSIDE. [Suspect]
     Active Substance: ETOPOSIDE
     Indication: ACUTE LYMPHOCYTIC LEUKAEMIA
     Dosage: 100 MG/M2, QD (FOR FIVE DAYS)
     Route: 065
  2. CYCLOPHOSPHAMIDE. [Suspect]
     Active Substance: CYCLOPHOSPHAMIDE
     Indication: ACUTE LYMPHOCYTIC LEUKAEMIA
     Dosage: 440 MG/M2, QD (FOR FIVE DAYS)
     Route: 065
  3. NELARABINE [Suspect]
     Active Substance: NELARABINE
     Indication: ACUTE LYMPHOCYTIC LEUKAEMIA
     Dosage: 650 MG/M2, QD (FOR FIVE DAYS)
     Route: 065
     Dates: start: 20140313, end: 20140330

REACTIONS (9)
  - Vomiting [Unknown]
  - Neurotoxicity [Unknown]
  - Bone marrow failure [Unknown]
  - Pneumonia [Unknown]
  - Febrile neutropenia [Unknown]
  - Stomatitis [Unknown]
  - Tumour lysis syndrome [Unknown]
  - Neuropathy peripheral [Unknown]
  - Diarrhoea [Unknown]
